FAERS Safety Report 7543693-2 (Version None)
Quarter: 2011Q2

REPORT INFORMATION
  Report Type: 
  Country: None (occurrence: None)
  Receive Date: 20110613
  Receipt Date: 20031027
  Transmission Date: 20111010
  Serious: Yes (Hospitalization, Disabling, Other)
  Sender: FDA-Public Use
  Company Number: PHHO2003CO08831

PATIENT

DRUGS (3)
  1. DOLEX [Concomitant]
  2. ZOMETA [Suspect]
     Indication: METASTASES TO BONE
     Dates: start: 20030501
  3. HYDROMORPHONE HCL [Concomitant]
     Dosage: 5 MG, QD
     Route: 048

REACTIONS (3)
  - PNEUMONIA [None]
  - MUSCULOSKELETAL CHEST PAIN [None]
  - DISEASE PROGRESSION [None]
